FAERS Safety Report 24591138 (Version 6)
Quarter: 2025Q3

REPORT INFORMATION
  Report Type: Report from Study
  Country: EU (occurrence: EU)
  Receive Date: 20241107
  Receipt Date: 20250806
  Transmission Date: 20251021
  Serious: Yes (Death, Hospitalization)
  Sender: SANOFI AVENTIS
  Company Number: EU-SA-SAC20220128000325

PATIENT
  Age: 72 Year
  Sex: Male
  Weight: 83 kg

DRUGS (29)
  1. ISATUXIMAB [Suspect]
     Active Substance: ISATUXIMAB
     Indication: Plasma cell myeloma refractory
     Dosage: 850 MG, QW
     Route: 065
     Dates: start: 20210826, end: 20210916
  2. ISATUXIMAB [Suspect]
     Active Substance: ISATUXIMAB
     Dosage: 850 MG, BIW
     Route: 065
     Dates: start: 20210923, end: 20211007
  3. ISATUXIMAB [Suspect]
     Active Substance: ISATUXIMAB
     Dosage: 850 MG, BIW
     Route: 065
     Dates: start: 20211021, end: 20211104
  4. ISATUXIMAB [Suspect]
     Active Substance: ISATUXIMAB
     Dosage: 850 MG, BIW
     Route: 065
     Dates: start: 20211118, end: 20211202
  5. ISATUXIMAB [Suspect]
     Active Substance: ISATUXIMAB
     Dosage: 850 MG, BIW
     Route: 065
     Dates: start: 20211216, end: 20211229
  6. ISATUXIMAB [Suspect]
     Active Substance: ISATUXIMAB
     Dosage: 850 MG, BIW
     Route: 065
     Dates: start: 20220113, end: 20220113
  7. POMALIDOMIDE [Suspect]
     Active Substance: POMALIDOMIDE
     Indication: Plasma cell myeloma refractory
     Dosage: 4 MG, QD
     Route: 065
     Dates: start: 20210826, end: 20210916
  8. POMALIDOMIDE [Suspect]
     Active Substance: POMALIDOMIDE
     Dosage: 4 MG, QD
     Route: 065
     Dates: start: 20210923, end: 20211013
  9. POMALIDOMIDE [Suspect]
     Active Substance: POMALIDOMIDE
     Dosage: 4 MG, QD
     Route: 065
     Dates: start: 20211021, end: 20211028
  10. POMALIDOMIDE [Suspect]
     Active Substance: POMALIDOMIDE
     Dosage: 4 MG, QD
     Route: 065
     Dates: start: 20211118, end: 20211202
  11. POMALIDOMIDE [Suspect]
     Active Substance: POMALIDOMIDE
     Dosage: 4 MG, QD
     Route: 065
     Dates: start: 20211216, end: 20211229
  12. POMALIDOMIDE [Suspect]
     Active Substance: POMALIDOMIDE
     Dosage: 4 MG, QD
     Route: 065
     Dates: start: 20220113, end: 20220117
  13. DEXAMETHASONE [Suspect]
     Active Substance: DEXAMETHASONE
     Indication: Plasma cell myeloma refractory
     Dosage: 40 MG, QW
     Route: 065
     Dates: start: 20210826, end: 20210916
  14. DEXAMETHASONE [Suspect]
     Active Substance: DEXAMETHASONE
     Dosage: 40 MG, QW
     Route: 065
     Dates: start: 20210923, end: 20211014
  15. DEXAMETHASONE [Suspect]
     Active Substance: DEXAMETHASONE
     Dosage: 40 MG, QW
     Route: 065
     Dates: start: 20211021, end: 20211028
  16. DEXAMETHASONE [Suspect]
     Active Substance: DEXAMETHASONE
     Dosage: 20 MG, BIW
     Route: 065
     Dates: start: 20211104, end: 20211111
  17. DEXAMETHASONE [Suspect]
     Active Substance: DEXAMETHASONE
     Dosage: 40 MG, BIW
     Route: 065
     Dates: start: 20211125, end: 20211209
  18. DEXAMETHASONE [Suspect]
     Active Substance: DEXAMETHASONE
     Dosage: 40 MG, BIW
     Route: 065
     Dates: start: 20211216, end: 20220106
  19. DEXAMETHASONE [Suspect]
     Active Substance: DEXAMETHASONE
     Dosage: 20 MG, QW
     Route: 065
     Dates: start: 20220113, end: 20220117
  20. CLEMASTINE [Concomitant]
     Active Substance: CLEMASTINE
     Indication: Premedication
     Route: 065
     Dates: start: 20210826, end: 20220114
  21. PERFALGAN [Concomitant]
     Active Substance: ACETAMINOPHEN
     Indication: Premedication
     Route: 065
     Dates: start: 20210826, end: 20220223
  22. METOCLOPRAMIDE [Concomitant]
     Active Substance: METOCLOPRAMIDE
     Indication: Nausea
     Route: 065
     Dates: start: 20210826, end: 20220223
  23. METOCLOPRAMIDE [Concomitant]
     Active Substance: METOCLOPRAMIDE
     Indication: Vomiting
  24. ASPIRIN [Concomitant]
     Active Substance: ASPIRIN
     Route: 065
     Dates: start: 20210826, end: 20220223
  25. PANTOPRAZOLE [Concomitant]
     Active Substance: PANTOPRAZOLE
     Route: 065
     Dates: start: 20210826, end: 20220223
  26. OCTAGAM IMMUNE GLOBULIN (HUMAN) [Concomitant]
     Active Substance: HUMAN IMMUNOGLOBULIN G
     Route: 042
     Dates: start: 20210901, end: 20220223
  27. XGEVA [Concomitant]
     Active Substance: DENOSUMAB
     Route: 065
     Dates: start: 20190307, end: 20220223
  28. ACYCLOVIR [Concomitant]
     Active Substance: ACYCLOVIR
     Route: 065
     Dates: start: 20190619, end: 20220223
  29. TORSEMIDE [Concomitant]
     Active Substance: TORSEMIDE
     Route: 065
     Dates: start: 20210603, end: 20220223

REACTIONS (3)
  - Renal failure [Fatal]
  - Acute kidney injury [Recovered/Resolved with Sequelae]
  - Bronchitis [Recovered/Resolved]

NARRATIVE: CASE EVENT DATE: 20211028
